FAERS Safety Report 20973647 (Version 2)
Quarter: 2022Q3

REPORT INFORMATION
  Report Type: Spontaneous
  Country: RU (occurrence: RU)
  Receive Date: 20220617
  Receipt Date: 20220803
  Transmission Date: 20221026
  Serious: Yes (Hospitalization, Other)
  Sender: FDA-Public Use
  Company Number: RU-NOVOPROD-926949

PATIENT
  Sex: Male
  Weight: 4.55 kg

DRUGS (4)
  1. TRESIBA [Suspect]
     Active Substance: INSULIN DEGLUDEC
     Dosage: 20 - 22 IU PER DAY
     Route: 064
     Dates: start: 20211119
  2. TRESIBA [Suspect]
     Active Substance: INSULIN DEGLUDEC
     Indication: Type 1 diabetes mellitus
     Dosage: 20 - 22 IU PER DAY
     Route: 064
     Dates: start: 2018, end: 20211030
  3. NOVORAPID [Suspect]
     Active Substance: INSULIN ASPART
     Indication: Type 1 diabetes mellitus
     Dosage: 30 IU, TID(8-10 X TIMES PER DAY)
     Route: 064
     Dates: start: 2011
  4. NOVORAPID [Suspect]
     Active Substance: INSULIN ASPART
     Dosage: DOSE INCREASED (1.5 UNITS OF NOVORAPID FOR 1 BREAD UNIT)
     Route: 064
     Dates: start: 2011

REACTIONS (3)
  - Neonatal pneumonia [Recovered/Resolved]
  - Premature baby [Recovered/Resolved]
  - Foetal exposure during pregnancy [Recovered/Resolved]

NARRATIVE: CASE EVENT DATE: 20210801
